FAERS Safety Report 9934821 (Version 1)
Quarter: 2014Q1

REPORT INFORMATION
  Report Type: Spontaneous
  Country: US (occurrence: US)
  Receive Date: 20140228
  Receipt Date: 20140228
  Transmission Date: 20141002
  Serious: Yes (Disabling, Other)
  Sender: FDA-Public Use
  Company Number: PHHY2014US024028

PATIENT
  Sex: Female

DRUGS (2)
  1. METOPROLOL [Suspect]
     Dosage: 200 MG, UNK
     Dates: start: 201307
  2. METOPROLOL [Suspect]
     Dosage: 150 MG, UNK
     Dates: start: 20140218

REACTIONS (9)
  - Blood cholesterol increased [Unknown]
  - Activities of daily living impaired [Unknown]
  - Heart rate increased [Unknown]
  - Feeling abnormal [Not Recovered/Not Resolved]
  - Asthenia [Unknown]
  - Sleep disorder [Unknown]
  - Blood pressure increased [Unknown]
  - Drug ineffective [Unknown]
  - Product quality issue [Unknown]
